FAERS Safety Report 9259490 (Version 2)
Quarter: 2013Q3

REPORT INFORMATION
  Report Type: Report from Study
  Country: FR (occurrence: FR)
  Receive Date: 20130428
  Receipt Date: 20130711
  Transmission Date: 20140515
  Serious: Yes (Hospitalization, Other)
  Sender: FDA-Public Use
  Company Number: FR-AMGEN-FRACT2013028827

PATIENT
  Age: 79 Year
  Sex: Female

DRUGS (3)
  1. ETANERCEPT [Suspect]
     Indication: RHEUMATOID ARTHRITIS
     Dosage: 50 MG, WEEKLY
     Route: 065
     Dates: start: 200901, end: 200910
  2. ETANERCEPT [Suspect]
     Dosage: 25 MG, WEEKLY
     Route: 065
     Dates: start: 201003, end: 201003
  3. PREDNISONE [Concomitant]
     Dosage: 6 MG DAILY
     Dates: start: 200901

REACTIONS (3)
  - Renal failure [Recovered/Resolved]
  - Cystitis escherichia [Unknown]
  - Erysipelas [Recovered/Resolved]
